FAERS Safety Report 9064385 (Version 2)
Quarter: 2013Q1

REPORT INFORMATION
  Report Type: Spontaneous
  Country: US (occurrence: US)
  Receive Date: 20130213
  Receipt Date: 20130301
  Transmission Date: 20140127
  Serious: Yes (Other)
  Sender: FDA-Public Use
  Company Number: US-PFIZER INC-2013053353

PATIENT
  Sex: Female

DRUGS (3)
  1. LIPITOR [Suspect]
     Indication: BLOOD CHOLESTEROL ABNORMAL
     Dosage: 10 MG, UNK
     Dates: start: 2011
  2. LIPITOR [Suspect]
     Dosage: 20 MG, UNK
  3. LIPITOR [Suspect]
     Dosage: UNK

REACTIONS (2)
  - Glucose tolerance impaired [Unknown]
  - Drug ineffective [Unknown]
